FAERS Safety Report 5481750-5 (Version None)
Quarter: 2007Q4

REPORT INFORMATION
  Report Type: 
  Country: None (occurrence: None)
  Receive Date: 20071010
  Receipt Date: 20071003
  Transmission Date: 20080405
  Serious: Yes (Hospitalization, Other)
  Sender: FDA-Public Use
  Company Number: BR-SHR-BR-2006-029896

PATIENT
  Age: 20 Year
  Sex: Female
  Weight: 49 kg

DRUGS (1)
  1. YASMIN [Suspect]
     Indication: ACNE
     Dosage: 1 TAB(S), 1X/DAY
     Route: 048
     Dates: start: 20060701, end: 20061004

REACTIONS (16)
  - ASTHENIA [None]
  - CEREBELLAR ATAXIA [None]
  - COUGH [None]
  - DIARRHOEA [None]
  - DIPLOPIA [None]
  - DIZZINESS [None]
  - DYSPNOEA [None]
  - DYSSTASIA [None]
  - HEADACHE [None]
  - IIIRD NERVE PARESIS [None]
  - NAUSEA [None]
  - PAIN IN EXTREMITY [None]
  - SPEECH DISORDER [None]
  - VISUAL ACUITY REDUCED [None]
  - VOMITING [None]
  - WEIGHT INCREASED [None]
